FAERS Safety Report 9735859 (Version 1)
Quarter: 2013Q4

REPORT INFORMATION
  Report Type: Spontaneous
  Country: US (occurrence: US)
  Receive Date: 20131206
  Receipt Date: 20131206
  Transmission Date: 20140711
  Serious: No
  Sender: FDA-Public Use
  Company Number: US-GILEAD-2009-0024208

PATIENT
  Age: 71 Year
  Sex: Female
  Weight: 101.6 kg

DRUGS (14)
  1. LETAIRIS [Suspect]
     Indication: PULMONARY ARTERIAL HYPERTENSION
     Route: 048
     Dates: start: 20090223
  2. REVATIO [Concomitant]
  3. LASIX [Concomitant]
  4. METOPROLOL [Concomitant]
  5. PREDNISONE [Concomitant]
  6. PRAVASTATIN [Concomitant]
  7. GLIMEPIRIDE [Concomitant]
  8. K-DUR [Concomitant]
  9. ASPIRIN [Concomitant]
  10. NAPROSYN [Concomitant]
  11. MSM [Concomitant]
  12. PREMARIN [Concomitant]
  13. VITAMIN B-12 [Concomitant]
  14. CALCIUM [Concomitant]

REACTIONS (2)
  - Muscular weakness [Not Recovered/Not Resolved]
  - Local swelling [Not Recovered/Not Resolved]
